FAERS Safety Report 4814042-5 (Version None)
Quarter: 2005Q4

REPORT INFORMATION
  Report Type: 
  Country: None (occurrence: None)
  Receive Date: 20051028
  Receipt Date: 20050621
  Transmission Date: 20060501
  Serious: No
  Sender: FDA-Public Use
  Company Number: US-GLAXOSMITHKLINE-A0563623A

PATIENT
  Age: 56 Year
  Sex: Female

DRUGS (7)
  1. SEREVENT [Suspect]
     Indication: DRUG USE FOR UNKNOWN INDICATION
     Dosage: 1PUFF TWICE PER DAY
     Route: 055
     Dates: start: 20050620
  2. ZOLOFT [Concomitant]
  3. CLONAZEPAM [Concomitant]
  4. PREMPRO [Concomitant]
  5. BUSPAR [Concomitant]
  6. CALCIUM GLUCONATE [Concomitant]
  7. LISINOPRIL [Concomitant]

REACTIONS (2)
  - CHEST PAIN [None]
  - TREMOR [None]
